FAERS Safety Report 22898602 (Version 2)
Quarter: 2024Q1

REPORT INFORMATION
  Report Type: Spontaneous
  Country: JP (occurrence: JP)
  Receive Date: 20230904
  Receipt Date: 20240109
  Transmission Date: 20240409
  Serious: Yes (Hospitalization, Other)
  Sender: FDA-Public Use
  Company Number: JP-STRIDES ARCOLAB LIMITED-2023SP013868

PATIENT
  Age: 49 Year
  Sex: Female

DRUGS (16)
  1. CYCLOSPORINE [Suspect]
     Active Substance: CYCLOSPORINE
     Indication: Acute myeloid leukaemia
     Dosage: UNK
     Route: 065
  2. CYCLOSPORINE [Suspect]
     Active Substance: CYCLOSPORINE
     Indication: Prophylaxis against graft versus host disease
  3. ETOPOSIDE [Suspect]
     Active Substance: ETOPOSIDE
     Indication: Acute myeloid leukaemia
     Dosage: UNK
     Route: 065
  4. METHOTREXATE [Suspect]
     Active Substance: METHOTREXATE
     Indication: Acute myeloid leukaemia
     Dosage: UNK
     Route: 065
  5. METHOTREXATE [Suspect]
     Active Substance: METHOTREXATE
     Indication: Prophylaxis against graft versus host disease
     Dosage: 10 MILLIGRAM/SQ. METER (ON DAY +1)
     Route: 065
  6. METHOTREXATE [Suspect]
     Active Substance: METHOTREXATE
     Dosage: 7 MILLIGRAM/SQ. METER (ON DAY +3, +6 AND +11)
     Route: 065
  7. MITOXANTRONE [Suspect]
     Active Substance: MITOXANTRONE HYDROCHLORIDE
     Indication: Acute myeloid leukaemia
     Dosage: UNK
     Route: 065
  8. CYTARABINE [Suspect]
     Active Substance: CYTARABINE
     Indication: Acute myeloid leukaemia
     Dosage: UNK (SALVAGE CHEMOTHERAPY)
     Route: 065
  9. GEMTUZUMAB OZOGAMICIN [Suspect]
     Active Substance: GEMTUZUMAB OZOGAMICIN
     Indication: Acute myeloid leukaemia
     Dosage: UNK
     Route: 065
  10. GILTERITINIB [Suspect]
     Active Substance: GILTERITINIB
     Indication: Acute myeloid leukaemia
     Dosage: UNK
     Route: 065
  11. GILTERITINIB [Suspect]
     Active Substance: GILTERITINIB
     Dosage: 120 MILLIGRAM PER DAY
     Route: 065
  12. GILTERITINIB [Suspect]
     Active Substance: GILTERITINIB
     Dosage: 80 MILLIGRAM, PER DAY
     Route: 065
  13. GILTERITINIB [Suspect]
     Active Substance: GILTERITINIB
     Dosage: UNK
     Route: 065
  14. FLUDARABINE [Suspect]
     Active Substance: FLUDARABINE PHOSPHATE
     Indication: Immunosuppressant drug therapy
     Dosage: UNK
     Route: 065
  15. BUSULFAN [Suspect]
     Active Substance: BUSULFAN
     Indication: Immunosuppressant drug therapy
     Dosage: UNK
     Route: 065
  16. MELPHALAN [Suspect]
     Active Substance: MELPHALAN
     Indication: Immunosuppressant drug therapy
     Dosage: UNK
     Route: 065

REACTIONS (4)
  - Bronchitis [Unknown]
  - Drug ineffective [Unknown]
  - Acute graft versus host disease [Unknown]
  - Off label use [Unknown]
